FAERS Safety Report 6954072-0 (Version None)
Quarter: 2010Q3

REPORT INFORMATION
  Report Type: 
  Country: None (occurrence: None)
  Receive Date: 20100829
  Receipt Date: 20100701
  Transmission Date: 20110219
  Serious: No
  Sender: FDA-Public Use
  Company Number: US-ABBOTT-10P-163-0655510-00

PATIENT
  Sex: Female
  Weight: 55.388 kg

DRUGS (3)
  1. NIASPAN [Suspect]
     Indication: BLOOD CHOLESTEROL INCREASED
     Dates: start: 20100401
  2. SYNTHROID [Concomitant]
     Indication: HYPOTHYROIDISM
  3. ATENOLOL [Concomitant]
     Indication: PALPITATIONS

REACTIONS (5)
  - CYSTITIS [None]
  - FLUSHING [None]
  - GAIT DISTURBANCE [None]
  - HYPOTONIA [None]
  - MUSCULAR WEAKNESS [None]
